FAERS Safety Report 14518712 (Version 4)
Quarter: 2018Q2

REPORT INFORMATION
  Report Type: Report from Study
  Country: CN (occurrence: CN)
  Receive Date: 20180212
  Receipt Date: 20180604
  Transmission Date: 20180711
  Serious: Yes (Hospitalization)
  Sender: FDA-Public Use
  Company Number: CN-JNJFOC-20180126302

PATIENT
  Age: 69 Year
  Sex: Female
  Weight: 70 kg

DRUGS (35)
  1. LORATADINE. [Concomitant]
     Active Substance: LORATADINE
     Indication: ANAPHYLAXIS TREATMENT
     Route: 048
     Dates: start: 20180112, end: 20180119
  2. SULFAMETHOXAZOLE [Concomitant]
     Active Substance: SULFAMETHOXAZOLE
     Indication: ANTIINFLAMMATORY THERAPY
     Route: 048
     Dates: start: 20180125
  3. BUDESONIDE. [Concomitant]
     Active Substance: BUDESONIDE
     Indication: PRODUCTIVE COUGH
     Route: 055
     Dates: start: 20180125
  4. CALCITRIOL. [Concomitant]
     Active Substance: CALCITRIOL
     Indication: OSTEOPOROSIS
     Route: 048
     Dates: start: 20171023
  5. XARELTO [Suspect]
     Active Substance: RIVAROXABAN
     Indication: CEREBROVASCULAR ACCIDENT
     Route: 048
     Dates: start: 20171109
  6. POTASSIUM CHLORIDE. [Concomitant]
     Active Substance: POTASSIUM CHLORIDE
     Indication: MINERAL SUPPLEMENTATION
     Route: 042
     Dates: start: 20180111, end: 20180117
  7. OMEPRAZOLE SODIUM [Concomitant]
     Active Substance: OMEPRAZOLE SODIUM
     Indication: ANTACID THERAPY
     Route: 040
     Dates: start: 20180111, end: 20180129
  8. MESALAZINE [Concomitant]
     Active Substance: MESALAMINE
     Indication: DRUG THERAPY
     Route: 042
     Dates: start: 20180122, end: 20180123
  9. VORICONAZOLE. [Concomitant]
     Active Substance: VORICONAZOLE
     Indication: POLYURIA
     Route: 048
     Dates: start: 20180129
  10. XARELTO [Suspect]
     Active Substance: RIVAROXABAN
     Indication: CEREBROVASCULAR ACCIDENT
     Route: 048
     Dates: start: 20171108
  11. IPRATROPIUM BROMIDE. [Concomitant]
     Active Substance: IPRATROPIUM BROMIDE
     Indication: ASTHMA
     Route: 055
     Dates: start: 20180125, end: 20180129
  12. HUMAN ALBUMIN [Concomitant]
     Active Substance: ALBUMIN HUMAN
     Indication: ENTERAL NUTRITION
     Route: 042
     Dates: start: 20180112, end: 20180117
  13. CALCIUM GLUCONATE. [Concomitant]
     Active Substance: CALCIUM GLUCONATE
     Indication: ANAPHYLAXIS TREATMENT
     Route: 040
     Dates: start: 20180115, end: 20180123
  14. METHYLPREDNISOLONE. [Concomitant]
     Active Substance: METHYLPREDNISOLONE
     Indication: NEPHRITIS
     Route: 042
     Dates: start: 20180117, end: 20180127
  15. HEPARIN CALCIUM [Concomitant]
     Active Substance: HEPARIN CALCIUM
     Indication: COLD EXPOSURE INJURY
     Route: 058
     Dates: start: 20180119, end: 20180121
  16. POTASSIUM CHLORIDE. [Concomitant]
     Active Substance: POTASSIUM CHLORIDE
     Indication: MINERAL SUPPLEMENTATION
     Route: 048
     Dates: start: 20180124, end: 20180127
  17. CLORPRENALINE [Concomitant]
     Indication: GASTRIC PH DECREASED
     Route: 048
     Dates: start: 20180125
  18. XARELTO [Suspect]
     Active Substance: RIVAROXABAN
     Indication: CEREBROVASCULAR ACCIDENT PROPHYLAXIS
     Route: 048
     Dates: start: 20171108
  19. XARELTO [Suspect]
     Active Substance: RIVAROXABAN
     Indication: CEREBROVASCULAR ACCIDENT PROPHYLAXIS
     Route: 048
     Dates: start: 20171109
  20. FUROSEMIDE. [Concomitant]
     Active Substance: FUROSEMIDE
     Indication: POLYURIA
     Route: 048
     Dates: start: 20171215
  21. SPIRONOLACTONE. [Concomitant]
     Active Substance: SPIRONOLACTONE
     Indication: POLYURIA
     Route: 048
     Dates: start: 20171215
  22. SPIRONOLACTONE. [Concomitant]
     Active Substance: SPIRONOLACTONE
     Indication: CARDIAC FAILURE
     Route: 048
     Dates: start: 20171215
  23. SPIRONOLACTONE. [Concomitant]
     Active Substance: SPIRONOLACTONE
     Indication: POLYURIA
     Route: 048
     Dates: start: 20180116, end: 20180117
  24. CALCIMAGON-D3 [Concomitant]
     Active Substance: CALCIUM\CHOLECALCIFEROL
     Indication: MINERAL SUPPLEMENTATION
     Route: 048
     Dates: start: 20180121, end: 20180129
  25. VITAMIN B6 [Concomitant]
     Active Substance: PYRIDOXINE HYDROCHLORIDE
     Indication: ENTERAL NUTRITION
     Route: 042
     Dates: start: 20180111, end: 20180117
  26. AMBROXOL [Concomitant]
     Active Substance: AMBROXOL
     Indication: PRODUCTIVE COUGH
     Route: 040
     Dates: start: 20180114, end: 20180129
  27. GUAIACOL [Concomitant]
     Active Substance: GUAIACOL
     Indication: COUGH
     Route: 048
     Dates: start: 20180120, end: 20180129
  28. NIFEDIPINE. [Concomitant]
     Active Substance: NIFEDIPINE
     Indication: HYPERTENSION
     Route: 048
     Dates: start: 20171101
  29. SPIRONOLACTONE. [Concomitant]
     Active Substance: SPIRONOLACTONE
     Indication: CARDIAC FAILURE
     Route: 048
     Dates: start: 20180116, end: 20180117
  30. ASCORBIC ACID. [Concomitant]
     Active Substance: ASCORBIC ACID
     Indication: ENTERAL NUTRITION
     Route: 042
     Dates: start: 20180111, end: 20180117
  31. FUROSEMIDE. [Concomitant]
     Active Substance: FUROSEMIDE
     Indication: CARDIAC FAILURE
     Route: 042
     Dates: start: 20180116, end: 20180117
  32. FUROSEMIDE. [Concomitant]
     Active Substance: FUROSEMIDE
     Indication: POLYURIA
     Route: 048
     Dates: start: 20180119
  33. PREDNISONE. [Concomitant]
     Active Substance: PREDNISONE
     Indication: NEPHRITIS
     Route: 048
     Dates: start: 20180127, end: 20180129
  34. RIVAROXABAN [Concomitant]
     Active Substance: RIVAROXABAN
     Indication: ATRIAL FIBRILLATION
     Route: 048
     Dates: start: 20171106, end: 20171107
  35. IOPAMIDOL [Concomitant]
     Active Substance: IOPAMIDOL
     Indication: INTRAOPERATIVE CARE
     Route: 013
     Dates: start: 20180110, end: 20180110

REACTIONS (1)
  - Henoch-Schonlein purpura [Recovering/Resolving]

NARRATIVE: CASE EVENT DATE: 20171230
